FAERS Safety Report 23363887 (Version 2)
Quarter: 2024Q1

REPORT INFORMATION
  Report Type: Spontaneous
  Country: CA (occurrence: CA)
  Receive Date: 20240104
  Receipt Date: 20240201
  Transmission Date: 20240409
  Serious: No
  Sender: FDA-Public Use
  Company Number: CA-TOLMAR, INC.-23CA045094

PATIENT
  Age: 79 Year
  Sex: Male

DRUGS (4)
  1. ELIGARD [Suspect]
     Active Substance: LEUPROLIDE ACETATE
     Indication: Prostate cancer
     Dosage: 22.5 MILLIGRAM
     Dates: start: 20230802
  2. ELIGARD [Suspect]
     Active Substance: LEUPROLIDE ACETATE
     Dosage: 22.5 MILLIGRAM
     Dates: start: 20231026
  3. DEVICE [Suspect]
     Active Substance: DEVICE
     Indication: Prostate cancer
     Dosage: UNK
  4. CASODEX [Concomitant]
     Active Substance: BICALUTAMIDE
     Indication: Product used for unknown indication
     Dosage: 50 MILLIGRAM
     Dates: start: 202307, end: 202307

REACTIONS (2)
  - Blood testosterone abnormal [Not Recovered/Not Resolved]
  - Prostatic specific antigen abnormal [Unknown]

NARRATIVE: CASE EVENT DATE: 20231127
